FAERS Safety Report 24844572 (Version 1)
Quarter: 2025Q1

REPORT INFORMATION
  Report Type: Other
  Country: SG (occurrence: SG)
  Receive Date: 20250115
  Receipt Date: 20250115
  Transmission Date: 20250408
  Serious: Yes (Other)
  Sender: CREEKWOOD PHARMACEUTICALS LLC
  Company Number: SG-Creekwood Pharmaceuticals LLC-2169068

PATIENT
  Age: 63 Year
  Sex: Female

DRUGS (2)
  1. HYDROXYCHLOROQUINE SULFATE [Suspect]
     Active Substance: HYDROXYCHLOROQUINE SULFATE
     Indication: Rheumatoid arthritis
  2. PREDNISOLONE [Suspect]
     Active Substance: PREDNISOLONE

REACTIONS (3)
  - Rheumatoid arthritis [Recovered/Resolved]
  - Osteoporosis [Unknown]
  - Rebound effect [Recovered/Resolved]
